FAERS Safety Report 5464235-1 (Version None)
Quarter: 2007Q3

REPORT INFORMATION
  Report Type: 
  Country: None (occurrence: None)
  Receive Date: 20070921
  Receipt Date: 20070914
  Transmission Date: 20080115
  Serious: Yes (Hospitalization)
  Sender: FDA-Public Use
  Company Number: US-GILEAD-2007-0013391

PATIENT
  Sex: Male

DRUGS (1)
  1. LETAIRIS [Suspect]
     Dates: start: 20070701, end: 20070901

REACTIONS (4)
  - GASTRITIS HAEMORRHAGIC [None]
  - LOCAL SWELLING [None]
  - OEDEMA [None]
  - URINARY RETENTION [None]
